FAERS Safety Report 10085181 (Version 1)
Quarter: 2014Q2

REPORT INFORMATION
  Report Type: Spontaneous
  Country: PT (occurrence: PT)
  Receive Date: 20140417
  Receipt Date: 20140417
  Transmission Date: 20141212
  Serious: Yes (Disabling)
  Sender: FDA-Public Use
  Company Number: PT-ACTAVIS-2014-07418

PATIENT
  Age: 54 Year
  Sex: Female

DRUGS (1)
  1. PACLITAXEL ACTAVIS [Suspect]
     Indication: BREAST CANCER
     Dosage: 160 MG, DAILY
     Route: 042
     Dates: start: 20140324, end: 20140324

REACTIONS (1)
  - Cough [Recovered/Resolved]
